FAERS Safety Report 20909956 (Version 1)
Quarter: 2022Q2

REPORT INFORMATION
  Report Type: Spontaneous
  Country: US (occurrence: US)
  Receive Date: 20220603
  Receipt Date: 20220603
  Transmission Date: 20220721
  Serious: Yes (Hospitalization)
  Sender: FDA-Public Use
  Company Number: US-LUPIN PHARMACEUTICALS INC.-2022-07987

PATIENT
  Age: 8 Week
  Sex: Male

DRUGS (12)
  1. LEVETIRACETAM [Suspect]
     Active Substance: LEVETIRACETAM
     Indication: Status epilepticus
     Dosage: 40 MILLIGRAM PER KILOGRAM PER DAY, BID (40 MG/KG/DAY DIVIDED INTO TWO TIMES PER DAY)
     Route: 065
  2. LEVETIRACETAM [Suspect]
     Active Substance: LEVETIRACETAM
     Dosage: 30 MILLIGRAM/KILOGRAM
     Route: 065
  3. FOSPHENYTOIN SODIUM [Suspect]
     Active Substance: FOSPHENYTOIN SODIUM
     Indication: Status epilepticus
     Dosage: 20 MILLIGRAM/KILOGRAM
     Route: 065
  4. FOSPHENYTOIN SODIUM [Suspect]
     Active Substance: FOSPHENYTOIN SODIUM
     Dosage: 20 MILLIGRAM/KILOGRAM
     Route: 065
  5. FOSPHENYTOIN SODIUM [Suspect]
     Active Substance: FOSPHENYTOIN SODIUM
     Dosage: 20 MILLIGRAM/KILOGRAM
     Route: 065
  6. LACOSAMIDE [Suspect]
     Active Substance: LACOSAMIDE
     Indication: Status epilepticus
     Dosage: 20 MILLIGRAM (LOADING DOSE OF 20 MG (APPROXIMATELY 4 MG/KG) WAS GIVEN)
     Route: 042
  7. LACOSAMIDE [Suspect]
     Active Substance: LACOSAMIDE
     Dosage: 20 MILLIGRAM (ANOTHER LOAD OF LACOSAMIDE 20 MG WAS GIVEN)
     Route: 042
  8. PHENOBARBITAL [Suspect]
     Active Substance: PHENOBARBITAL
     Indication: Status epilepticus
     Dosage: 5 MILLIGRAM PER KILOGRAM PER DAY, BID (5 MG/KG/DAY DIVIDED INTO TWO TIMES PER DAY)
     Route: 065
  9. PHENOBARBITAL [Suspect]
     Active Substance: PHENOBARBITAL
     Dosage: 20 MILLIGRAM/KILOGRAM
     Route: 065
  10. MIDAZOLAM [Suspect]
     Active Substance: MIDAZOLAM
     Indication: Status epilepticus
     Dosage: 0.05 MILLIGRAM PER KILOGRAM PER HOUR
     Route: 065
  11. MIDAZOLAM [Suspect]
     Active Substance: MIDAZOLAM
     Dosage: 0.15 MILLIGRAM PER KILOGRAM PER HOUR  (SLOWLY ESCALATED FROM 0.05 MG/KG/ HOUR TO 0.15 MG/KG/HOUR OVE
     Route: 065
  12. PHENYTOIN [Concomitant]
     Active Substance: PHENYTOIN
     Indication: Status epilepticus
     Dosage: UNK
     Route: 065

REACTIONS (2)
  - Therapy non-responder [Unknown]
  - Off label use [Unknown]
